FAERS Safety Report 8325471-X (Version None)
Quarter: 2012Q2

REPORT INFORMATION
  Report Type: 
  Country: None (occurrence: None)
  Receive Date: 20120501
  Receipt Date: 20120425
  Transmission Date: 20120825
  Serious: No
  Sender: FDA-Public Use
  Company Number: US-PFIZER INC-2012102813

PATIENT
  Sex: Female
  Weight: 127 kg

DRUGS (5)
  1. CARVEDILOL [Concomitant]
     Indication: HYPERTENSION
     Dosage: 25 MG, 2X/DAY
  2. EFFEXOR XR [Suspect]
     Indication: MIGRAINE WITH AURA
     Dosage: 75 MG IN MORNING AND 150 MG AT NIGHT
     Dates: end: 20120401
  3. EFFEXOR XR [Suspect]
     Indication: HOT FLUSH
     Dosage: 75 MG, DAILY
  4. AMLODIPINE [Concomitant]
     Indication: HYPERTENSION
     Dosage: 10 MG, DAILY
  5. HYDROCHLOROTHIAZIDE [Concomitant]
     Indication: HYPERTENSION
     Dosage: 25 MG, ONCE ON MONDAY, WEDNESDAY, AND FRIDAY

REACTIONS (5)
  - CRYING [None]
  - MIGRAINE WITH AURA [None]
  - DEPRESSION [None]
  - DRUG WITHDRAWAL SYNDROME [None]
  - INSOMNIA [None]
